FAERS Safety Report 8266927-8 (Version None)
Quarter: 2012Q2

REPORT INFORMATION
  Report Type: 
  Country: None (occurrence: None)
  Receive Date: 20120404
  Receipt Date: 20120404
  Transmission Date: 20120825
  Serious: Yes (Hospitalization)
  Sender: FDA-Public Use
  Company Number: None

PATIENT
  Age: 73 Year
  Sex: Female
  Weight: 90.3 kg

DRUGS (7)
  1. WARFARIN SODIUM [Suspect]
     Indication: ATRIAL FIBRILLATION
     Dosage: 8MG QPM PO CHRONIC
     Route: 048
  2. WARFARIN SODIUM [Suspect]
     Indication: DEEP VEIN THROMBOSIS
     Dosage: 8MG QPM PO CHRONIC
     Route: 048
  3. METOPROLOL TARTRATE [Concomitant]
  4. PRAVASTATIN [Concomitant]
  5. LEVOTHYROXINE SODIUM [Concomitant]
  6. ENALAPRIL MALEATE [Concomitant]
  7. HYDROCHLOROTHIAZIDE [Concomitant]

REACTIONS (4)
  - ADNEXA UTERI MASS [None]
  - LOWER GASTROINTESTINAL HAEMORRHAGE [None]
  - COLITIS ISCHAEMIC [None]
  - INTERNATIONAL NORMALISED RATIO INCREASED [None]
